FAERS Safety Report 5509388-1 (Version None)
Quarter: 2007Q4

REPORT INFORMATION
  Report Type: 
  Country: None (occurrence: None)
  Receive Date: 20071107
  Receipt Date: 20071030
  Transmission Date: 20080405
  Serious: Yes (Hospitalization)
  Sender: FDA-Public Use
  Company Number: US-MERCK-0710USA06550

PATIENT
  Age: 77 Year
  Sex: Male

DRUGS (8)
  1. VYTORIN [Suspect]
     Indication: BLOOD CHOLESTEROL
     Route: 048
     Dates: start: 20060401, end: 20061002
  2. INSULIN [Concomitant]
     Indication: BLOOD CHOLESTEROL
     Route: 065
  3. NOVOLOG [Concomitant]
     Route: 065
  4. DIOVAN [Concomitant]
     Route: 065
  5. AMBIEN [Concomitant]
     Route: 065
  6. NEXIUM [Concomitant]
     Route: 065
  7. LOPRESSOR [Concomitant]
     Route: 065
  8. NUTROPIN [Concomitant]
     Route: 065

REACTIONS (2)
  - ABASIA [None]
  - MUSCULAR WEAKNESS [None]
